FAERS Safety Report 6724812-4 (Version None)
Quarter: 2010Q2

REPORT INFORMATION
  Report Type: 
  Country: None (occurrence: None)
  Receive Date: 20100513
  Receipt Date: 20100504
  Transmission Date: 20101027
  Serious: Yes (Other)
  Sender: FDA-Public Use
  Company Number: CA-JNJFOC-20100501523

PATIENT
  Sex: Female
  Weight: 63.3 kg

DRUGS (1)
  1. REMICADE [Suspect]
     Indication: RHEUMATOID ARTHRITIS
     Route: 042
     Dates: start: 20081218

REACTIONS (2)
  - BACK PAIN [None]
  - SPINAL OSTEOARTHRITIS [None]
